FAERS Safety Report 17172760 (Version 3)
Quarter: 2020Q2

REPORT INFORMATION
  Report Type: Spontaneous
  Country: US (occurrence: US)
  Receive Date: 20191219
  Receipt Date: 20200518
  Transmission Date: 20200713
  Serious: Yes (Disabling)
  Sender: FDA-Public Use
  Company Number: US-SA-2019SA349806

PATIENT
  Age: 36 Year
  Sex: Female

DRUGS (5)
  1. AUBAGIO [Suspect]
     Active Substance: TERIFLUNOMIDE
     Indication: MULTIPLE SCLEROSIS
     Dosage: 14 MG, QD
     Route: 048
     Dates: start: 2019
  2. ESCITALOPRAM OXALATE. [Concomitant]
     Active Substance: ESCITALOPRAM OXALATE
  3. MELATONIN [Concomitant]
     Active Substance: MELATONIN
  4. LISINOPRIL. [Concomitant]
     Active Substance: LISINOPRIL
  5. KYLEENA [Concomitant]
     Active Substance: LEVONORGESTREL
     Dosage: 17.5 MCG/24 IUD

REACTIONS (3)
  - Gait inability [Unknown]
  - Joint stiffness [Unknown]
  - Nasopharyngitis [Recovering/Resolving]

NARRATIVE: CASE EVENT DATE: 2019
